FAERS Safety Report 20963527 (Version 1)
Quarter: 2022Q2

REPORT INFORMATION
  Report Type: Spontaneous
  Country: US (occurrence: US)
  Receive Date: 20220615
  Receipt Date: 20220615
  Transmission Date: 20220721
  Serious: No
  Sender: FDA-Public Use
  Company Number: US-HORIZON THERAPEUTICS-HZN-2021-006691

PATIENT
  Sex: Female
  Weight: 109 kg

DRUGS (3)
  1. RAYOS [Suspect]
     Active Substance: PREDNISONE
     Indication: Product used for unknown indication
     Route: 065
  2. TREPROSTINIL SODIUM [Suspect]
     Active Substance: TREPROSTINIL SODIUM
     Indication: Pulmonary arterial hypertension
     Dosage: REGIMEN-1 AT 60-120 ?G, QID
     Route: 065
     Dates: start: 20210709
  3. TREPROSTINIL SODIUM [Suspect]
     Active Substance: TREPROSTINIL SODIUM
     Dosage: REGIMEN-2 AT 18-54 ?G, QID
     Route: 065
     Dates: start: 202107

REACTIONS (7)
  - Throat irritation [Unknown]
  - Dyspnoea [Unknown]
  - Cough [Unknown]
  - Abnormal dreams [Unknown]
  - Weight decreased [Unknown]
  - Fluid retention [Unknown]
  - Off label use [Unknown]

NARRATIVE: CASE EVENT DATE: 20210101
